FAERS Safety Report 8107605 (Version 2)
Quarter: 2013Q1

REPORT INFORMATION
  Report Type: Report from Study
  Country: CH (occurrence: CH)
  Receive Date: 20110825
  Receipt Date: 20130206
  Transmission Date: 20140127
  Serious: Yes (Death, Hospitalization)
  Sender: FDA-Public Use
  Company Number: CH-BRISTOL-MYERS SQUIBB COMPANY-15979560

PATIENT
  Age: 70 Year
  Sex: Male

DRUGS (6)
  1. IPILIMUMAB [Suspect]
     Indication: MALIGNANT MELANOMA
     Dosage: 260MG 20JUL2011 IV?260MG 10AUG2011 IV
     Route: 042
     Dates: start: 20110720
  2. CONCOR [Concomitant]
     Dates: start: 2010, end: 20110817
  3. ACETYLSALICYLIC ACID [Concomitant]
     Dates: start: 2010, end: 20110817
  4. LEVEMIR [Concomitant]
     Dates: start: 2010
  5. NOVOMIX [Concomitant]
     Dates: start: 2010
  6. TOREM [Concomitant]
     Dates: start: 2010, end: 20110817

REACTIONS (2)
  - Hepatitis [Fatal]
  - Renal failure [Fatal]
